FAERS Safety Report 7296174-8 (Version None)
Quarter: 2011Q1

REPORT INFORMATION
  Report Type: 
  Country: None (occurrence: None)
  Receive Date: 20110211
  Receipt Date: 20110211
  Transmission Date: 20110831
  Serious: Yes (Other)
  Sender: FDA-Public Use
  Company Number: None

PATIENT
  Age: 57 Year
  Sex: Female
  Weight: 55.3388 kg

DRUGS (2)
  1. EVISTA [Suspect]
     Indication: OSTEOPOROSIS
     Dosage: 60 MG. TABLET DAILY BY MOUTH
     Route: 048
     Dates: start: 20100702, end: 20100802
  2. FOSAMAX [Suspect]
     Indication: OSTEOPOROSIS
     Dosage: 70 MG. TABLET WEEKLY BY MOUTH
     Route: 048
     Dates: start: 20100515, end: 20100615

REACTIONS (6)
  - SENSORY DISTURBANCE [None]
  - FATIGUE [None]
  - PAIN IN JAW [None]
  - CARPAL TUNNEL SYNDROME [None]
  - ARTHRALGIA [None]
  - OEDEMA PERIPHERAL [None]
